FAERS Safety Report 19892524 (Version 1)
Quarter: 2021Q3

REPORT INFORMATION
  Report Type: Spontaneous
  Country: NL (occurrence: PL)
  Receive Date: 20210928
  Receipt Date: 20210928
  Transmission Date: 20211014
  Serious: Yes (Other)
  Sender: FDA-Public Use
  Company Number: PL-FRESENIUS KABI-FK202110277

PATIENT
  Age: 56 Year
  Sex: Male
  Weight: 90 kg

DRUGS (1)
  1. PARACETAMOL (MANUFACTURER UNKNOWN) [Suspect]
     Active Substance: ACETAMINOPHEN
     Indication: PRODUCT USED FOR UNKNOWN INDICATION
     Dosage: DOSE: 500 MG 5X/DAY
     Route: 065

REACTIONS (3)
  - Pain [Recovered/Resolved]
  - Nausea [Recovered/Resolved]
  - Pyrexia [Recovered/Resolved]
